FAERS Safety Report 5471204-4 (Version None)
Quarter: 2007Q3

REPORT INFORMATION
  Report Type: 
  Country: None (occurrence: None)
  Receive Date: 20070928
  Receipt Date: 20070717
  Transmission Date: 20080115
  Serious: No
  Sender: FDA-Public Use
  Company Number: A0664582A

PATIENT
  Age: 83 Year
  Sex: Female

DRUGS (17)
  1. FLOVENT [Suspect]
     Indication: ASTHMA
     Route: 055
  2. CARDIZEM [Concomitant]
  3. CALCIUM [Concomitant]
  4. GLUCOSAMINE [Concomitant]
  5. STOOL SOFTENER [Concomitant]
  6. FIBERCON [Concomitant]
  7. SUPER B COMPLEX [Concomitant]
  8. SEREVENT [Concomitant]
  9. NASAL CROM NASAL SPRAY [Concomitant]
  10. FLUTICASONE PROPIONATE [Concomitant]
  11. PAXIL [Concomitant]
  12. FEXOFENADINE [Concomitant]
  13. SINGULAIR [Concomitant]
  14. EVISTA [Concomitant]
  15. DIOVAN [Concomitant]
  16. ZOLPIDEM TARTRATE [Concomitant]
  17. LYRICA [Concomitant]

REACTIONS (2)
  - APHTHOUS STOMATITIS [None]
  - PHARMACEUTICAL PRODUCT COMPLAINT [None]
